FAERS Safety Report 24162196 (Version 1)
Quarter: 2024Q3

REPORT INFORMATION
  Report Type: Spontaneous
  Country: US (occurrence: None)
  Receive Date: 20240731
  Receipt Date: 20240731
  Transmission Date: 20241016
  Serious: Yes (Other)
  Sender: Public
  Company Number: None

PATIENT
  Age: 40 Year
  Sex: Female
  Weight: 110.7 kg

DRUGS (5)
  1. DUPIXENT [Suspect]
     Active Substance: DUPILUMAB
     Indication: Neurodermatitis
     Dosage: 300 MG EVERY 2 WEEKS SUBCUTANEOUS
     Route: 058
     Dates: start: 20240515
  2. Lithium Carbonate 150 mg Caps [Concomitant]
  3. Vitamin D 1.25 mg caps [Concomitant]
  4. Fluvoxamine mal 100 mg [Concomitant]
  5. Ferrous Sulfate 325 mg [Concomitant]

REACTIONS (4)
  - Therapy cessation [None]
  - Insurance issue [None]
  - Condition aggravated [None]
  - Neurodermatitis [None]

NARRATIVE: CASE EVENT DATE: 20240731
